FAERS Safety Report 8455849-5 (Version None)
Quarter: 2012Q2

REPORT INFORMATION
  Report Type: 
  Country: None (occurrence: None)
  Receive Date: 20120621
  Receipt Date: 20120614
  Transmission Date: 20120825
  Serious: Yes (Hospitalization, Other)
  Sender: FDA-Public Use
  Company Number: US-BAYER-2011-076825

PATIENT
  Age: 20 Year
  Sex: Female
  Weight: 54 kg

DRUGS (6)
  1. TYLENOL W/ CODEINE NO. 3 [Concomitant]
     Dosage: 1 TABLET AS NEEDED
     Route: 048
  2. YASMIN [Suspect]
     Dosage: UNK
     Dates: start: 20051001, end: 20090801
  3. ACETAMINOPHEN [Concomitant]
     Indication: ABDOMINAL PAIN
     Dosage: UNK UNK, PRN
  4. ANALGESICS [Concomitant]
     Dosage: UNK
     Dates: start: 20080508
  5. I.V. SOLUTIONS [Concomitant]
     Dosage: UNK
     Dates: start: 20080508
  6. PROTONIX [Concomitant]
     Dosage: 40 MG, UNK
     Dates: start: 20080508

REACTIONS (9)
  - MENTAL DISORDER [None]
  - PAIN [None]
  - MYOCARDIAL INFARCTION [None]
  - DEEP VEIN THROMBOSIS [None]
  - FEAR [None]
  - CHOLECYSTITIS CHRONIC [None]
  - PULMONARY EMBOLISM [None]
  - CEREBROVASCULAR ACCIDENT [None]
  - GALLBLADDER DISORDER [None]
